FAERS Safety Report 8552666-2 (Version None)
Quarter: 2012Q3

REPORT INFORMATION
  Report Type: 
  Country: None (occurrence: None)
  Receive Date: 20120731
  Receipt Date: 20120726
  Transmission Date: 20120928
  Serious: No
  Sender: FDA-Public Use
  Company Number: US-PFIZER INC-2012178547

PATIENT
  Sex: Male
  Weight: 63.492 kg

DRUGS (2)
  1. CHANTIX [Suspect]
     Dosage: 0.5 MG, 2X/DAY
     Route: 048
     Dates: start: 20120701
  2. CHANTIX [Suspect]
     Indication: SMOKING CESSATION THERAPY
     Dosage: 0.5 MG, DAILY
     Route: 048
     Dates: start: 20120718, end: 20120701

REACTIONS (7)
  - RESTLESS LEGS SYNDROME [None]
  - CONSTIPATION [None]
  - PARAESTHESIA [None]
  - ABDOMINAL DISTENSION [None]
  - SOMNOLENCE [None]
  - NAUSEA [None]
  - NOCTURIA [None]
